FAERS Safety Report 5974224-6 (Version None)
Quarter: 2008Q4

REPORT INFORMATION
  Report Type: 
  Country: None (occurrence: None)
  Receive Date: 20081128
  Receipt Date: 20080603
  Transmission Date: 20090506
  Serious: Yes (Hospitalization, Other)
  Sender: FDA-Public Use
  Company Number: THAES200800203

PATIENT
  Age: 84 Year
  Sex: Female

DRUGS (5)
  1. THALIDOMIDE [Suspect]
     Indication: LEPROSY
     Dosage: 100 MG/DAY, ORAL
     Route: 048
  2. PREDNISONE [Concomitant]
  3. CLARYTHROMYCIN [Concomitant]
  4. SULFONE (DAPSONE) [Concomitant]
  5. PENTOXIFYLLINE [Concomitant]

REACTIONS (1)
  - HEPATITIS TOXIC [None]
